FAERS Safety Report 6520299-5 (Version None)
Quarter: 2009Q4

REPORT INFORMATION
  Report Type: 
  Country: None (occurrence: None)
  Receive Date: 20091229
  Receipt Date: 20091216
  Transmission Date: 20100525
  Serious: Yes (Other)
  Sender: FDA-Public Use
  Company Number: CZ-BAYER-200943664GPV

PATIENT
  Age: 52 Year
  Sex: Male

DRUGS (12)
  1. ALEMTUZUMAB [Suspect]
     Indication: CHRONIC LYMPHOCYTIC LEUKAEMIA
     Dosage: REDUCED DOSES
     Route: 065
     Dates: start: 20070221, end: 20070606
  2. RITUXIMAB [Concomitant]
     Indication: CHRONIC LYMPHOCYTIC LEUKAEMIA
     Dosage: 2 CYCLES CHOP AND 2 CYCLES R-CHOP
     Dates: start: 20051130, end: 20060302
  3. CYCLOPHOSPHAMIDE [Concomitant]
     Indication: CHRONIC LYMPHOCYTIC LEUKAEMIA
     Dosage: 2 CYCLES CHOP AND 2 CYCLES R-CHOP
     Dates: start: 20051130, end: 20060302
  4. CYCLOPHOSPHAMIDE [Concomitant]
     Dosage: CHOP
     Dates: start: 20070102, end: 20070123
  5. CYCLOPHOSPHAMIDE [Concomitant]
     Dosage: FC REGIMEN
     Dates: start: 20070626, end: 20070726
  6. DOXORUBICIN HCL [Concomitant]
     Indication: CHRONIC LYMPHOCYTIC LEUKAEMIA
     Dosage: 2 CYCLES CHOP AND 2 CYCLES R-CHOP
     Dates: start: 20051130, end: 20060302
  7. DOXORUBICIN HCL [Concomitant]
     Dosage: CHOP
     Dates: start: 20070102, end: 20070123
  8. VINCRISTINE [Concomitant]
     Indication: CHRONIC LYMPHOCYTIC LEUKAEMIA
     Dosage: 2 CYCLES CHOP AND 2 CYCLES R-CHOP
     Dates: start: 20051130, end: 20060302
  9. VINCRISTINE [Concomitant]
     Dosage: CHOP
     Dates: start: 20070102, end: 20070123
  10. PREDNISONE [Concomitant]
     Indication: CHRONIC LYMPHOCYTIC LEUKAEMIA
     Dosage: 2 CYCLES CHOP AND 2 CYCLES R-CHOP
     Dates: start: 20051130, end: 20060302
  11. PREDNISONE [Concomitant]
     Dosage: CHOP
     Dates: start: 20070102, end: 20070123
  12. FLUDARABINE [Concomitant]
     Indication: CHRONIC LYMPHOCYTIC LEUKAEMIA
     Dosage: FC REGIMEN
     Dates: start: 20070626, end: 20070726

REACTIONS (1)
  - GENE MUTATION [None]
